FAERS Safety Report 7291180-1 (Version None)
Quarter: 2011Q1

REPORT INFORMATION
  Report Type: 
  Country: None (occurrence: None)
  Receive Date: 20110214
  Receipt Date: 20110208
  Transmission Date: 20110831
  Serious: Yes (Hospitalization)
  Sender: FDA-Public Use
  Company Number: SE-MERCK-1102SWE00014

PATIENT
  Age: 55 Year
  Sex: Male

DRUGS (4)
  1. VASOTEC [Suspect]
     Indication: ESSENTIAL HYPERTENSION
     Route: 048
     Dates: end: 20100820
  2. ZOCOR [Suspect]
     Indication: HYPERLIPIDAEMIA
     Route: 048
     Dates: end: 20100820
  3. ZOCOR [Suspect]
     Indication: HYPERTRIGLYCERIDAEMIA
     Route: 048
     Dates: end: 20100820
  4. METOPROLOL [Concomitant]
     Route: 048

REACTIONS (4)
  - BLOOD CREATINE PHOSPHOKINASE INCREASED [None]
  - TRANSAMINASES INCREASED [None]
  - MYALGIA [None]
  - BLOOD CREATININE INCREASED [None]
